FAERS Safety Report 21149893 (Version 1)
Quarter: 2022Q3

REPORT INFORMATION
  Report Type: Spontaneous
  Country: US (occurrence: US)
  Receive Date: 20220729
  Receipt Date: 20220729
  Transmission Date: 20221027
  Serious: No
  Sender: FDA-Public Use
  Company Number: US-NOVOPROD-885146

PATIENT
  Sex: Female
  Weight: 97.522 kg

DRUGS (1)
  1. OZEMPIC [Suspect]
     Active Substance: SEMAGLUTIDE
     Indication: Product used for unknown indication
     Dosage: 0.25 MG
     Route: 058
     Dates: start: 2021

REACTIONS (5)
  - Dry throat [Not Recovered/Not Resolved]
  - Ocular hyperaemia [Recovering/Resolving]
  - Paraesthesia oral [Not Recovered/Not Resolved]
  - Hypersensitivity [Recovering/Resolving]
  - Inappropriate schedule of product administration [Unknown]

NARRATIVE: CASE EVENT DATE: 20210101
